FAERS Safety Report 6067625-1 (Version None)
Quarter: 2009Q1

REPORT INFORMATION
  Report Type: 
  Country: None (occurrence: None)
  Receive Date: 20090205
  Receipt Date: 20090203
  Transmission Date: 20090719
  Serious: No
  Sender: FDA-Public Use
  Company Number: US-B.I. PHARMACEUTICALS,INC./RIDGEFIELD-2009-BP-01326BP

PATIENT
  Age: 80 Year
  Sex: Male

DRUGS (5)
  1. FLOMAX [Suspect]
     Indication: BENIGN PROSTATIC HYPERPLASIA
     Dosage: .4MG
     Route: 048
     Dates: start: 20070101
  2. FLOMAX [Suspect]
     Dosage: .8MG
     Route: 048
     Dates: start: 20070101, end: 20070101
  3. AVODART [Concomitant]
     Indication: BENIGN PROSTATIC HYPERPLASIA
  4. ASACOL [Concomitant]
     Indication: COLITIS
  5. ASACOL [Concomitant]
     Indication: CROHN'S DISEASE

REACTIONS (3)
  - BLOOD PRESSURE DECREASED [None]
  - DEHYDRATION [None]
  - SYNCOPE [None]
